FAERS Safety Report 13668972 (Version 1)
Quarter: 2017Q2

REPORT INFORMATION
  Report Type: Spontaneous
  Country: BR (occurrence: BR)
  Receive Date: 20170620
  Receipt Date: 20170620
  Transmission Date: 20170830
  Serious: Yes (Other)
  Sender: FDA-Public Use
  Company Number: BR-PFIZER INC-2017262501

PATIENT
  Age: 55 Year
  Sex: Male

DRUGS (1)
  1. TALIGLUCERASE ALFA [Suspect]
     Active Substance: TALIGLUCERASE ALFA
     Indication: GAUCHER^S DISEASE
     Dosage: 52 IU/KG, EVERY TWO WEEKS
     Route: 042

REACTIONS (4)
  - Hepatic function abnormal [Unknown]
  - Headache [Unknown]
  - Renal impairment [Unknown]
  - Hormone level abnormal [Unknown]
